FAERS Safety Report 8989848 (Version 1)
Quarter: 2012Q4

REPORT INFORMATION
  Report Type: 
  Country: CA (occurrence: CA)
  Receive Date: 20121228
  Receipt Date: 20121228
  Transmission Date: 20130627
  Serious: Yes (Hospitalization)
  Sender: FDA-Public Use
  Company Number: CA-GLAXOSMITHKLINE-A1003583A

PATIENT
  Age: 48 Year
  Sex: Female

DRUGS (4)
  1. TYKERB [Suspect]
     Indication: BREAST CANCER METASTATIC
     Dosage: 1250MG Per day
     Route: 048
     Dates: start: 20120207
  2. XELODA [Suspect]
     Route: 065
  3. FRAGMIN [Concomitant]
     Route: 065
  4. DILANTIN [Concomitant]
     Route: 065

REACTIONS (9)
  - Encephalitis [Unknown]
  - Aphasia [Not Recovered/Not Resolved]
  - Palmar-plantar erythrodysaesthesia syndrome [Unknown]
  - Erythema [Unknown]
  - Pain [Unknown]
  - Skin lesion [Unknown]
  - Convulsion [Unknown]
  - Metastases to central nervous system [Unknown]
  - Metastases to spine [Unknown]
